FAERS Safety Report 9103344 (Version 2)
Quarter: 2013Q1

REPORT INFORMATION
  Report Type: Spontaneous
  Country: US (occurrence: US)
  Receive Date: 20130218
  Receipt Date: 20130306
  Transmission Date: 20140127
  Serious: Yes (Hospitalization, Other)
  Sender: FDA-Public Use
  Company Number: US-ROCHE-1188133

PATIENT
  Age: 61 Year
  Sex: Female
  Weight: 86.3 kg

DRUGS (24)
  1. VEMURAFENIB [Suspect]
     Indication: METASTATIC MALIGNANT MELANOMA
     Route: 048
     Dates: start: 20130107, end: 20130121
  2. METHYLPREDNISONE (UNK INGREDIENTS) [Concomitant]
     Route: 065
  3. ATENOLOL [Concomitant]
     Indication: HYPERTENSION
     Route: 048
     Dates: start: 20120105
  4. PEPCID [Concomitant]
     Indication: RASH
     Route: 048
     Dates: start: 20121109
  5. HYDROCODONE/ACETAMINOPHEN [Concomitant]
     Dosage: 7.5 MG/500 MG
     Route: 048
     Dates: start: 20121130
  6. BENADRYL [Concomitant]
     Indication: RASH
     Route: 048
     Dates: start: 20121109
  7. ATARAX [Concomitant]
     Indication: RASH
     Route: 048
     Dates: start: 20121109
  8. MEDROL DOSEPAK [Concomitant]
  9. LIDOCAINE - PRILOCAINE [Concomitant]
     Route: 061
  10. ALEVE [Concomitant]
  11. HYDROCORTISONE CREAM [Concomitant]
  12. LEVOTHYROXINE [Concomitant]
     Route: 065
  13. PREDNISOLONE [Concomitant]
     Route: 065
  14. PREDNISOLONE [Concomitant]
     Route: 065
  15. DOXYCYCLINE [Concomitant]
  16. CIPROFLOXACIN [Concomitant]
  17. LEVAQUIN [Concomitant]
     Route: 065
     Dates: end: 20130205
  18. MAGIC MOUTHWASH (MAALOX PRODUCT NOS/LIDOCAINE/DIPHENHYDRAMINE) [Concomitant]
     Route: 048
  19. OMEPRAZOLE [Concomitant]
     Route: 048
  20. AQUAPHOR (UNITED STATES) [Concomitant]
  21. MIRALAX [Concomitant]
     Route: 048
  22. ALPRAZOLAM [Concomitant]
     Route: 065
  23. DEXAMETHASONE [Concomitant]
     Route: 065
  24. HEPARIN [Concomitant]

REACTIONS (8)
  - Drug reaction with eosinophilia and systemic symptoms [Recovering/Resolving]
  - Rash [Unknown]
  - Renal failure acute [Recovering/Resolving]
  - Transaminases increased [Unknown]
  - Meningitis aseptic [Recovering/Resolving]
  - Muscular weakness [Recovering/Resolving]
  - Hyponatraemia [Recovering/Resolving]
  - Hypothyroidism [Unknown]
